FAERS Safety Report 16203856 (Version 1)
Quarter: 2019Q2

REPORT INFORMATION
  Report Type: Spontaneous
  Country: US (occurrence: US)
  Receive Date: 20190416
  Receipt Date: 20190416
  Transmission Date: 20190711
  Serious: Yes (Other)
  Sender: FDA-Public Use
  Company Number: US-COLGATE PALMOLIVE COMPANY-20190401052

PATIENT
  Age: 41 Year
  Sex: Male

DRUGS (1)
  1. COLGATE TOTAL CLEAN MINT [Suspect]
     Active Substance: SODIUM FLUORIDE\TRICLOSAN
     Dosage: FILLED BRISTLES WITH TOOTHPASTE FROM TOP TO BOTTOM-4-5 TIMES A DAY

REACTIONS (2)
  - Expired product administered [Not Recovered/Not Resolved]
  - Dental caries [Not Recovered/Not Resolved]
